FAERS Safety Report 8623499-3 (Version None)
Quarter: 2012Q3

REPORT INFORMATION
  Report Type: 
  Country: None (occurrence: None)
  Receive Date: 20120827
  Receipt Date: 20120824
  Transmission Date: 20120928
  Serious: Yes (Death, Other)
  Sender: FDA-Public Use
  Company Number: US-PFIZER INC-2012174052

PATIENT
  Age: 15 Year
  Sex: Female
  Weight: 67.12 kg

DRUGS (2)
  1. TIKOSYN [Suspect]
     Indication: SUPRAVENTRICULAR TACHYCARDIA
     Dosage: 500 UNK, 2X/DAY
     Dates: start: 20111201, end: 20120624
  2. ASPIRIN [Concomitant]
     Dosage: UNK

REACTIONS (4)
  - HYPERHIDROSIS [None]
  - CARDIAC FAILURE [None]
  - FEELING HOT [None]
  - ABDOMINAL PAIN UPPER [None]
